FAERS Safety Report 15072519 (Version 2)
Quarter: 2018Q3

REPORT INFORMATION
  Report Type: Spontaneous
  Country: AU (occurrence: AU)
  Receive Date: 20180626
  Receipt Date: 20180710
  Transmission Date: 20181010
  Serious: Yes (Other)
  Sender: FDA-Public Use
  Company Number: AU-BEH-2018091994

PATIENT
  Age: 44 Year
  Sex: Female

DRUGS (1)
  1. PRIVIGEN [Suspect]
     Active Substance: HUMAN IMMUNOGLOBULIN G
     Indication: HEREDITARY MOTOR AND SENSORY NEUROPATHY
     Dosage: 30 G, QD
     Route: 042

REACTIONS (6)
  - Ocular hyperaemia [Recovered/Resolved]
  - Eye pain [Recovered/Resolved]
  - Visual acuity reduced [Recovered/Resolved]
  - Iridocyclitis [Recovered/Resolved]
  - Conjunctival hyperaemia [Recovered/Resolved]
  - Photophobia [Recovered/Resolved]
